FAERS Safety Report 13484419 (Version 1)
Quarter: 2017Q2

REPORT INFORMATION
  Report Type: Spontaneous
  Country: US (occurrence: US)
  Receive Date: 20170425
  Receipt Date: 20170425
  Transmission Date: 20170830
  Serious: Yes (Hospitalization)
  Sender: FDA-Public Use
  Company Number: US-STRIDES ARCOLAB LIMITED-2016SP016435

PATIENT

DRUGS (16)
  1. NAPROXEN. [Concomitant]
     Active Substance: NAPROXEN
     Indication: PAIN MANAGEMENT
     Dosage: 150 MG, UNK
     Route: 048
  2. CLINDAMYCIN. [Concomitant]
     Active Substance: CLINDAMYCIN
     Indication: STAPHYLOCOCCAL INFECTION
     Dosage: UNK
  3. LINEZOLID. [Concomitant]
     Active Substance: LINEZOLID
     Indication: STAPHYLOCOCCAL INFECTION
     Dosage: UNK
  4. RIFAMPIN. [Concomitant]
     Active Substance: RIFAMPIN
     Indication: STAPHYLOCOCCAL INFECTION
     Dosage: 300 MG, (10MG/KG/DOSE) EVERY 12 HRS
     Route: 042
  5. HYDROMORPHONE [Concomitant]
     Active Substance: HYDROMORPHONE
     Dosage: UNK
     Route: 042
  6. KETOROLAC [Concomitant]
     Active Substance: KETOROLAC\KETOROLAC TROMETHAMINE
     Indication: PAIN MANAGEMENT
     Dosage: UNK
     Route: 042
  7. RIFAMPIN. [Concomitant]
     Active Substance: RIFAMPIN
     Dosage: UNK
     Route: 048
  8. GENTAMICIN. [Concomitant]
     Active Substance: GENTAMICIN
     Indication: STAPHYLOCOCCAL INFECTION
     Dosage: 30 MG (1 MG/KG/DOSE) EVERY 8 HOURS
     Route: 042
  9. MORPHINE [Concomitant]
     Active Substance: MORPHINE
     Indication: PAIN MANAGEMENT
     Dosage: UNK
     Route: 042
  10. RIFAMPIN. [Concomitant]
     Active Substance: RIFAMPIN
     Dosage: 300 MG, BID
     Route: 048
  11. HYDROMORPHONE [Concomitant]
     Active Substance: HYDROMORPHONE
     Indication: STAPHYLOCOCCAL INFECTION
     Dosage: 0.5 MG, EVERY 2 HRS
     Route: 042
  12. VANCOMYCIN [Suspect]
     Active Substance: VANCOMYCIN
     Indication: STAPHYLOCOCCAL INFECTION
     Dosage: 550 MG (18 MG/KG/DOSE)
     Route: 042
  13. CEFTAROLINE [Concomitant]
     Active Substance: CEFTAROLINE
     Indication: STAPHYLOCOCCAL INFECTION
     Dosage: 400 MG, (13.3 MG/KG/DOSE)EVERY 8 HOURS
     Route: 042
  14. MORPHINE [Concomitant]
     Active Substance: MORPHINE
     Dosage: 6 MG, UNK
     Route: 042
  15. RIFAMPIN. [Concomitant]
     Active Substance: RIFAMPIN
     Dosage: 600 MG, (20 MG/KG/DOSE) EVERY 6 HRS
     Route: 042
  16. DAPTOMYCIN. [Concomitant]
     Active Substance: DAPTOMYCIN
     Indication: STAPHYLOCOCCAL INFECTION
     Dosage: 250 MG (8 MG/KG/DOSE) EVERY 24HRS
     Route: 042

REACTIONS (1)
  - Drug ineffective [Unknown]
